FAERS Safety Report 13428248 (Version 1)
Quarter: 2017Q2

REPORT INFORMATION
  Report Type: Spontaneous
  Country: US (occurrence: US)
  Receive Date: 20170411
  Receipt Date: 20170411
  Transmission Date: 20170830
  Serious: Yes (Death)
  Sender: FDA-Public Use
  Company Number: PHEH2017US010378

PATIENT
  Sex: Female

DRUGS (1)
  1. PROMACTA [Suspect]
     Active Substance: ELTROMBOPAG OLAMINE
     Indication: IMMUNE THROMBOCYTOPENIC PURPURA
     Dosage: 75 MG (1 DF 25 MG AND 1 DF 50 MG), QD
     Route: 048
     Dates: start: 20150924

REACTIONS (1)
  - Death [Fatal]

NARRATIVE: CASE EVENT DATE: 20170406
